FAERS Safety Report 5995581-0 (Version None)
Quarter: 2008Q4

REPORT INFORMATION
  Report Type: 
  Country: None (occurrence: None)
  Receive Date: 20081212
  Receipt Date: 20081024
  Transmission Date: 20090506
  Serious: No
  Sender: FDA-Public Use
  Company Number: US-ABBOTT-08P-163-0479301-00

PATIENT
  Sex: Female

DRUGS (11)
  1. HUMIRA [Suspect]
     Indication: RHEUMATOID ARTHRITIS
     Route: 058
     Dates: start: 20071213, end: 20080914
  2. ACTIFED-A [Concomitant]
     Indication: OSTEOPOROSIS
     Route: 048
  3. RABEPRAZOLE SODIUM [Concomitant]
     Indication: GASTRIC ULCER
     Route: 048
  4. SULTOPRIDE [Concomitant]
     Indication: HYPERTENSION
     Route: 048
  5. SULTOPRIDE [Concomitant]
     Indication: PROPHYLAXIS
  6. LEVOTHYROXINE SODIUM [Concomitant]
     Indication: HYPOTHYROIDISM
     Route: 048
  7. FELODIPINE [Concomitant]
     Indication: BLOOD PRESSURE
     Route: 048
  8. PREDNISONE TAB [Concomitant]
     Indication: STEROID THERAPY
     Route: 048
  9. METHOTREXATE [Concomitant]
     Indication: RHEUMATOID ARTHRITIS
     Route: 048
  10. METHOTREXATE [Concomitant]
     Indication: PROPHYLAXIS
  11. SIMVASTATIN [Concomitant]
     Indication: BLOOD CHOLESTEROL INCREASED
     Route: 048

REACTIONS (1)
  - RASH GENERALISED [None]
